FAERS Safety Report 15967592 (Version 2)
Quarter: 2019Q2

REPORT INFORMATION
  Report Type: Spontaneous
  Country: US (occurrence: US)
  Receive Date: 20190215
  Receipt Date: 20190401
  Transmission Date: 20190711
  Serious: No
  Sender: FDA-Public Use
  Company Number: US-SA-2019SA042386

PATIENT
  Age: 24 Year
  Sex: Female

DRUGS (3)
  1. DUPIXENT [Suspect]
     Active Substance: DUPILUMAB
     Indication: DERMATITIS ATOPIC
     Dosage: 600 MG, QD
     Route: 058
     Dates: start: 20190129
  2. XYZAL [Concomitant]
     Active Substance: LEVOCETIRIZINE DIHYDROCHLORIDE
     Indication: RHINITIS ALLERGIC
     Dosage: UNK UNK, QD
  3. FLONASE [Concomitant]
     Active Substance: FLUTICASONE PROPIONATE
     Indication: RHINITIS ALLERGIC
     Dosage: UNK

REACTIONS (10)
  - Eye swelling [Recovered/Resolved]
  - Urticaria [Recovered/Resolved]
  - Cough [Unknown]
  - Throat irritation [Recovered/Resolved]
  - Pruritus [Recovered/Resolved]
  - Eye irritation [Not Recovered/Not Resolved]
  - Cheilitis [Not Recovered/Not Resolved]
  - Dry eye [Not Recovered/Not Resolved]
  - Stomatitis [Unknown]
  - Dyspnoea [Unknown]

NARRATIVE: CASE EVENT DATE: 20190131
